FAERS Safety Report 11024677 (Version 3)
Quarter: 2015Q3

REPORT INFORMATION
  Report Type: Spontaneous
  Country: US (occurrence: None)
  Receive Date: 20150410
  Receipt Date: 20150707
  Transmission Date: 20151125
  Serious: Yes (Hospitalization, Other)
  Sender: FDA-Public Use
  Company Number: BTG00215

PATIENT
  Age: 67 Year
  Sex: Male
  Weight: 100 kg

DRUGS (4)
  1. VORAXAZE [Suspect]
     Active Substance: GLUCARPIDASE
     Indication: TOXICITY TO VARIOUS AGENTS
     Dosage: 3.5 G/M2, SINGLE
     Dates: start: 20150321
  2. LEUCOVORIN (CALCIUM FOLINATE) [Concomitant]
     Active Substance: LEUCOVORIN
  3. VORAXAZE [Suspect]
     Active Substance: GLUCARPIDASE
     Dosage: 3.5 G/M2, SINGLE
     Dates: start: 20150321
  4. METHOTREXATE (METHOTREXATE SODIUM) [Suspect]
     Active Substance: METHOTREXATE SODIUM
     Indication: DIFFUSE LARGE B-CELL LYMPHOMA
     Dosage: 3500 MG/M2, SINGLE, HIGH DOSE
     Dates: start: 20150322

REACTIONS (3)
  - Renal failure [None]
  - Incorrect dose administered [None]
  - Drug ineffective [None]
